FAERS Safety Report 9225261 (Version 1)
Quarter: 2013Q2

REPORT INFORMATION
  Report Type: Spontaneous
  Country: FR (occurrence: FR)
  Receive Date: 20130411
  Receipt Date: 20130411
  Transmission Date: 20140414
  Serious: Yes (Hospitalization)
  Sender: FDA-Public Use
  Company Number: FR-ROCHE-1080162

PATIENT
  Age: 56 Year
  Sex: Female

DRUGS (11)
  1. PEGASYS [Suspect]
     Indication: HEPATITIS VIRAL
     Route: 058
     Dates: start: 20120406, end: 20120509
  2. PEGASYS [Suspect]
     Route: 058
     Dates: start: 20120921, end: 20121221
  3. COPEGUS [Suspect]
     Indication: HEPATITIS VIRAL
     Route: 048
     Dates: start: 20120406, end: 20120509
  4. COPEGUS [Suspect]
     Dosage: DOSE REDUCED TO 2 CAPSULES DAILY
     Route: 048
     Dates: start: 20120921, end: 20121221
  5. INCIVO [Suspect]
     Indication: HEPATITIS VIRAL
     Route: 048
     Dates: start: 20120406, end: 20120509
  6. INCIVO [Suspect]
     Route: 048
     Dates: start: 20120921, end: 20121221
  7. LANTUS [Concomitant]
  8. HEMI-DAONIL [Concomitant]
  9. EUCREAS [Concomitant]
  10. COVERSYL [Concomitant]
  11. FUROSEMIDE [Concomitant]

REACTIONS (6)
  - Anaemia [Recovering/Resolving]
  - Thrombocytopenia [Recovering/Resolving]
  - Pruritus [Not Recovered/Not Resolved]
  - Rash maculo-papular [Recovering/Resolving]
  - Eosinophilia [Recovering/Resolving]
  - Asthenia [Unknown]
